FAERS Safety Report 5991112-X (Version None)
Quarter: 2008Q4

REPORT INFORMATION
  Report Type: 
  Country: None (occurrence: None)
  Receive Date: 20081211
  Receipt Date: 20081203
  Transmission Date: 20090506
  Serious: Yes (Hospitalization)
  Sender: FDA-Public Use
  Company Number: US-GENENTECH-272999

PATIENT

DRUGS (2)
  1. BEVACIZUMAB [Suspect]
     Indication: DRUG USE FOR UNKNOWN INDICATION
     Dosage: 7.5 MG/KG, Q21D
     Route: 042
     Dates: start: 20080506
  2. VANDETANIB [Suspect]
     Indication: DRUG USE FOR UNKNOWN INDICATION
     Dosage: 200 MG, QD
     Route: 048
     Dates: start: 20080506

REACTIONS (2)
  - BLOOD CREATININE INCREASED [None]
  - PNEUMOCYSTIS JIROVECI PNEUMONIA [None]
